FAERS Safety Report 13074347 (Version 1)
Quarter: 2016Q4

REPORT INFORMATION
  Report Type: Spontaneous
  Country: CA (occurrence: CA)
  Receive Date: 20161230
  Receipt Date: 20161230
  Transmission Date: 20170207
  Serious: Yes (Other)
  Sender: FDA-Public Use
  Company Number: CA-ORION CORPORATION ORION PHARMA-TREX2016-0539

PATIENT
  Age: 68 Year
  Sex: Female

DRUGS (13)
  1. METHOTREXATE (TRADE NAME UNKNOWN) [Suspect]
     Active Substance: METHOTREXATE
     Indication: RHEUMATOID ARTHRITIS
     Route: 048
     Dates: start: 200210
  2. ENBREL [Suspect]
     Active Substance: ETANERCEPT
     Route: 058
     Dates: start: 200503, end: 2013
  3. LEUCOVORIN. [Concomitant]
     Active Substance: LEUCOVORIN
     Route: 065
  4. VITAMIN D [Concomitant]
     Active Substance: CHOLECALCIFEROL
     Route: 065
  5. SULFASALAZINE. [Suspect]
     Active Substance: SULFASALAZINE
     Indication: RHEUMATOID ARTHRITIS
     Route: 048
  6. ORENCIA [Suspect]
     Active Substance: ABATACEPT
     Route: 042
     Dates: start: 201405, end: 201506
  7. ARAVA [Suspect]
     Active Substance: LEFLUNOMIDE
     Route: 065
  8. METHOTREXATE (TRADE NAME UNKNOWN) [Suspect]
     Active Substance: METHOTREXATE
     Route: 048
     Dates: start: 201208
  9. METHOTREXATE (TRADE NAME UNKNOWN) [Suspect]
     Active Substance: METHOTREXATE
     Route: 048
  10. HUMIRA [Suspect]
     Active Substance: ADALIMUMAB
     Route: 065
     Dates: start: 201303, end: 201309
  11. COVERSYL [Concomitant]
     Active Substance: PERINDOPRIL
     Indication: BLOOD PRESSURE INCREASED
     Route: 048
  12. PLAQUENIL [Suspect]
     Active Substance: HYDROXYCHLOROQUINE SULFATE
     Route: 065
  13. CIMZIA [Suspect]
     Active Substance: CERTOLIZUMAB PEGOL
     Route: 065
     Dates: start: 201311, end: 201404

REACTIONS (4)
  - Drug intolerance [Unknown]
  - Nausea [Unknown]
  - Drug effect incomplete [Unknown]
  - Osteoarthritis [Unknown]

NARRATIVE: CASE EVENT DATE: 201208
